FAERS Safety Report 10622259 (Version 1)
Quarter: 2014Q4

REPORT INFORMATION
  Report Type: Spontaneous
  Country: US (occurrence: None)
  Receive Date: 20141202
  Receipt Date: 20141202
  Transmission Date: 20150529
  Serious: Yes (Hospitalization)
  Sender: FDA-Public Use
  Company Number: None

PATIENT
  Age: 66 Year
  Sex: Male
  Weight: 102.97 kg

DRUGS (10)
  1. ASPIRIN. [Concomitant]
     Active Substance: ASPIRIN
  2. METOPROLOL [Concomitant]
     Active Substance: METOPROLOL
  3. TAMSULOSIN [Concomitant]
     Active Substance: TAMSULOSIN
  4. ATORVASTATIN [Concomitant]
     Active Substance: ATORVASTATIN
  5. ELIQUIS [Suspect]
     Active Substance: APIXABAN
     Indication: POST PROCEDURAL COMPLICATION
     Dosage: 1 TABLET (5 MG)
     Route: 048
     Dates: start: 20141124
  6. CLOPIDOGREL [Concomitant]
     Active Substance: CLOPIDOGREL BISULFATE
  7. LOSARTAN [Concomitant]
     Active Substance: LOSARTAN
  8. FINASTERIDE. [Concomitant]
     Active Substance: FINASTERIDE
  9. ELIQUIS [Suspect]
     Active Substance: APIXABAN
     Indication: ATRIAL FIBRILLATION
     Dosage: 1 TABLET (5 MG)
     Route: 048
     Dates: start: 20141124
  10. SOTALOL. [Concomitant]
     Active Substance: SOTALOL

REACTIONS (1)
  - Gastrointestinal haemorrhage [None]

NARRATIVE: CASE EVENT DATE: 20141127
